FAERS Safety Report 5180915-X (Version None)
Quarter: 2006Q4

REPORT INFORMATION
  Report Type: 
  Country: None (occurrence: None)
  Receive Date: 20061218
  Receipt Date: 20061218
  Transmission Date: 20070319
  Serious: Yes (Hospitalization)
  Sender: FDA-Public Use
  Company Number: None

PATIENT
  Age: 49 Year
  Sex: Female

DRUGS (9)
  1. IODIXANOL 320 MGI/ML AMERSHAM HEALTH [Suspect]
     Indication: COMPUTERISED TOMOGRAM
     Dosage: 150ML ONCE IV BOLUS
     Route: 040
     Dates: start: 20060630, end: 20060630
  2. NISOLDIPINE [Concomitant]
  3. RISEDRONATE SODIUM [Concomitant]
  4. MYCOPHENOLATE MOFETIL [Concomitant]
  5. ESOMEPRAZOLE MAGNESIUM [Concomitant]
  6. FLUTICASONE/SALMETEROL [Concomitant]
  7. SPIRIVA [Concomitant]
  8. PULMICORT [Concomitant]
  9. PREDNISONE [Concomitant]

REACTIONS (2)
  - HYPOTENSION [None]
  - NEPHROPATHY TOXIC [None]
